FAERS Safety Report 8990483 (Version 1)
Quarter: 2012Q4

REPORT INFORMATION
  Report Type: 
  Country: SE (occurrence: SE)
  Receive Date: 20121228
  Receipt Date: 20121228
  Transmission Date: 20130627
  Serious: Yes (Hospitalization)
  Sender: FDA-Public Use
  Company Number: SE-PFIZER INC-2012329392

PATIENT
  Age: 82 Year
  Sex: Female

DRUGS (3)
  1. IPREN [Suspect]
     Indication: PRODUCT USED FOR UNKNOWN INDICATION
     Dosage: UNK
     Route: 065
     Dates: end: 20120727
  2. IMPUGAN [Concomitant]
     Dosage: UNK
     Route: 065
  3. LOSARTAN [Concomitant]
     Dosage: UNK
     Route: 065

REACTIONS (2)
  - Renal failure acute [Recovering/Resolving]
  - Blood creatinine increased [Recovering/Resolving]
